FAERS Safety Report 8938500 (Version 1)
Quarter: 2012Q4

REPORT INFORMATION
  Report Type: 
  Country: CN (occurrence: CN)
  Receive Date: 20121130
  Receipt Date: 20121130
  Transmission Date: 20130627
  Serious: Yes (Other)
  Sender: FDA-Public Use
  Company Number: PHHY2012CN108205

PATIENT
  Sex: Male
  Weight: 62 kg

DRUGS (1)
  1. TEGRETOL [Suspect]
     Indication: HERPES ZOSTER
     Dosage: 0.2 g, TID
     Route: 048
     Dates: start: 20091022, end: 20091101

REACTIONS (6)
  - Conjunctival hyperaemia [Recovered/Resolved]
  - Lip erosion [Recovered/Resolved]
  - Occult blood [Recovered/Resolved]
  - Scrotal ulcer [Recovered/Resolved]
  - Erythema [Recovered/Resolved]
  - Blister [Recovered/Resolved]
